FAERS Safety Report 23109677 (Version 1)
Quarter: 2023Q4

REPORT INFORMATION
  Report Type: Spontaneous
  Country: US (occurrence: US)
  Receive Date: 20231026
  Receipt Date: 20231026
  Transmission Date: 20240109
  Serious: Yes (Death, Other)
  Sender: FDA-Public Use
  Company Number: US-AMGEN-USASP2023186564

PATIENT

DRUGS (3)
  1. BEVACIZUMAB [Suspect]
     Active Substance: BEVACIZUMAB
     Indication: Hepatocellular carcinoma
     Dosage: UNK
     Route: 065
  2. ATEZOLIZUMAB [Concomitant]
     Active Substance: ATEZOLIZUMAB
     Indication: Hepatocellular carcinoma
     Dosage: UNK
     Route: 065
  3. LENVATINIB [Concomitant]
     Active Substance: LENVATINIB
     Indication: Hepatocellular carcinoma
     Dosage: UNK
     Route: 065

REACTIONS (53)
  - Death [Fatal]
  - Hepatocellular carcinoma [Unknown]
  - Hypothyroidism [Unknown]
  - Thrombocytopenia [Unknown]
  - Ascites [Unknown]
  - Pancreatitis [Unknown]
  - Bradycardia [Unknown]
  - Cardiac failure congestive [Unknown]
  - Hyperkalaemia [Unknown]
  - Adverse event [Unknown]
  - Fatigue [Unknown]
  - Aspartate aminotransferase increased [Unknown]
  - Decreased appetite [Unknown]
  - Diarrhoea [Unknown]
  - Blood bilirubin increased [Unknown]
  - Nausea [Unknown]
  - Abdominal pain [Unknown]
  - Blood alkaline phosphatase increased [Unknown]
  - Anaemia [Unknown]
  - Oedema peripheral [Unknown]
  - Hypertension [Unknown]
  - Pruritus [Unknown]
  - Myalgia [Unknown]
  - Weight decreased [Unknown]
  - Palmar-plantar erythrodysaesthesia syndrome [Unknown]
  - Alanine aminotransferase increased [Unknown]
  - Mucosal inflammation [Unknown]
  - Abdominal distension [Unknown]
  - Dysphonia [Unknown]
  - Dyspnoea [Unknown]
  - Hyponatraemia [Unknown]
  - Lymphopenia [Unknown]
  - Confusional state [Unknown]
  - Headache [Unknown]
  - Asthenia [Unknown]
  - Hypoalbuminaemia [Unknown]
  - Arthralgia [Unknown]
  - Dry skin [Unknown]
  - Depression [Unknown]
  - Colitis [Unknown]
  - Back pain [Unknown]
  - Dizziness [Unknown]
  - Alopecia [Unknown]
  - Dry eye [Unknown]
  - Proteinuria [Unknown]
  - Epistaxis [Unknown]
  - Gait disturbance [Unknown]
  - Dysphagia [Unknown]
  - Hyperphosphataemia [Unknown]
  - Haemoptysis [Unknown]
  - Blood creatinine increased [Unknown]
  - Constipation [Unknown]
  - Off label use [Unknown]
